FAERS Safety Report 17876232 (Version 1)
Quarter: 2020Q2

REPORT INFORMATION
  Report Type: Spontaneous
  Country: US (occurrence: US)
  Receive Date: 20200609
  Receipt Date: 20200609
  Transmission Date: 20200714
  Serious: Yes (Other)
  Sender: FDA-Public Use
  Company Number: None

PATIENT
  Age: 66 Year
  Sex: Female

DRUGS (18)
  1. PROCHLOPERAZINE 10MG [Concomitant]
  2. REVLIMID [Concomitant]
     Active Substance: LENALIDOMIDE
  3. VITAMIN B-12 1000MCG [Concomitant]
  4. DEXAMETHASONE 4MG [Concomitant]
     Active Substance: DEXAMETHASONE
  5. NINLARO [Suspect]
     Active Substance: IXAZOMIB CITRATE
     Indication: PLASMA CELL MYELOMA
     Dosage: ?          OTHER FREQUENCY:WEEKLY;?
     Route: 048
  6. ACETAMINOPHEN 325MG [Concomitant]
  7. AMLODIPINE 2.5MG [Concomitant]
     Active Substance: AMLODIPINE BESYLATE
  8. GLIPIZIDE ER [Concomitant]
     Active Substance: GLIPIZIDE
  9. BACTRIM 800/16MG [Concomitant]
  10. GABAPENTIN 300MG [Concomitant]
     Active Substance: GABAPENTIN
  11. ELIQUIS [Concomitant]
     Active Substance: APIXABAN
  12. VITAMIN B-6 100MG [Concomitant]
  13. ATORVASTATIN 20MG [Concomitant]
     Active Substance: ATORVASTATIN
  14. OMEPRAZOLE 20MG [Concomitant]
     Active Substance: OMEPRAZOLE
  15. METFORMIN [Concomitant]
     Active Substance: METFORMIN HYDROCHLORIDE
  16. VITAMIN D 2,000 UNITS [Concomitant]
  17. ACYCLOVIR 400MG [Concomitant]
     Active Substance: ACYCLOVIR
  18. LOSARTAN 50MG [Concomitant]
     Active Substance: LOSARTAN

REACTIONS (2)
  - Peripheral swelling [None]
  - Neuropathy peripheral [None]

NARRATIVE: CASE EVENT DATE: 20200609
